FAERS Safety Report 24256713 (Version 7)
Quarter: 2025Q2

REPORT INFORMATION
  Report Type: Report from Study
  Country: US (occurrence: US)
  Receive Date: 20240828
  Receipt Date: 20250417
  Transmission Date: 20250717
  Serious: Yes (Hospitalization, Other)
  Sender: BOEHRINGER INGELHEIM
  Company Number: US-BoehringerIngelheim-2023-BI-237824

PATIENT
  Age: 63 Year
  Sex: Female

DRUGS (4)
  1. OFEV [Suspect]
     Active Substance: NINTEDANIB
     Indication: Idiopathic pulmonary fibrosis
     Dates: end: 20230627
  2. OFEV [Suspect]
     Active Substance: NINTEDANIB
     Indication: Interstitial lung disease
     Dates: start: 20230425
  3. OFEV [Suspect]
     Active Substance: NINTEDANIB
     Dates: start: 202503
  4. TADALAFIL [Concomitant]
     Active Substance: TADALAFIL
     Indication: Product used for unknown indication

REACTIONS (19)
  - Vomiting [Unknown]
  - Pneumonia [Unknown]
  - Complication associated with device [Unknown]
  - Gastrointestinal haemorrhage [Unknown]
  - Malnutrition [Unknown]
  - Scleroderma [Unknown]
  - Dehydration [Unknown]
  - Haematochezia [Unknown]
  - Diarrhoea [Recovered/Resolved]
  - Gastrointestinal disorder [Unknown]
  - Nausea [Not Recovered/Not Resolved]
  - Dysphagia [Unknown]
  - Post procedural haemorrhage [Unknown]
  - Feeding disorder [Unknown]
  - Tooth disorder [Unknown]
  - Diarrhoea [Unknown]
  - Fungal infection [Unknown]
  - Wound infection [Not Recovered/Not Resolved]
  - Oropharyngeal blistering [Recovered/Resolved]

NARRATIVE: CASE EVENT DATE: 20230401
